FAERS Safety Report 8602659-1 (Version None)
Quarter: 2012Q3

REPORT INFORMATION
  Report Type: 
  Country: None (occurrence: None)
  Receive Date: 20120423
  Receipt Date: 20090528
  Transmission Date: 20120928
  Serious: Yes (Other)
  Sender: FDA-Public Use
  Company Number: PHEH2009US05581

PATIENT

DRUGS (1)
  1. FEMARA [Suspect]

REACTIONS (1)
  - CEREBROVASCULAR ACCIDENT [None]
